FAERS Safety Report 9685170 (Version 1)
Quarter: 2013Q4

REPORT INFORMATION
  Report Type: Spontaneous
  Country: US (occurrence: None)
  Receive Date: 20131112
  Receipt Date: 20131112
  Transmission Date: 20140711
  Serious: Yes (Disabling)
  Sender: FDA-Public Use
  Company Number: None

PATIENT
  Age: 38 Year
  Sex: Female
  Weight: 47.63 kg

DRUGS (1)
  1. COPAXONE 20MG TEVA [Suspect]
     Indication: RELAPSING-REMITTING MULTIPLE SCLEROSIS
     Dosage: 1 INJECTION, ONCE DAILY, GIVEN INTO/UNDER THE SKIN
     Dates: start: 20131005, end: 20131031

REACTIONS (3)
  - Abasia [None]
  - Vomiting [None]
  - Blood glucose abnormal [None]
